FAERS Safety Report 5345339-0 (Version None)
Quarter: 2007Q2

REPORT INFORMATION
  Report Type: 
  Country: None (occurrence: None)
  Receive Date: 20070601
  Receipt Date: 20070529
  Transmission Date: 20071010
  Serious: Yes (Hospitalization, Disabling, Other)
  Sender: FDA-Public Use
  Company Number: 07052097

PATIENT
  Age: 54 Year
  Sex: Female

DRUGS (7)
  1. WARFARIN SODIUM [Suspect]
     Indication: ATRIAL FIBRILLATION
     Dosage: 5MG, 3XWK, ORAL
     Route: 048
  2. WARFARIN SODIUM [Suspect]
     Indication: ATRIAL FIBRILLATION
     Dosage: 2.5MG, 4XWK, ORAL
     Route: 048
  3. LIPITOR [Concomitant]
  4. DIGOXIN [Concomitant]
  5. CAPITROL (HALQUINOL) [Concomitant]
  6. COLCHICINE (COLCHICINE) [Concomitant]
  7. MECLAN (MECLOCYCLINE SULFOSALICYLATE) [Concomitant]

REACTIONS (8)
  - ARTERIAL THROMBOSIS [None]
  - BALANCE DISORDER [None]
  - CEREBROVASCULAR ACCIDENT [None]
  - DEAFNESS UNILATERAL [None]
  - DIZZINESS [None]
  - INTERNATIONAL NORMALISED RATIO DECREASED [None]
  - SUDDEN HEARING LOSS [None]
  - VERTIGO [None]
